FAERS Safety Report 7403177-9 (Version None)
Quarter: 2011Q1

REPORT INFORMATION
  Report Type: 
  Country: None (occurrence: None)
  Receive Date: 20110301
  Receipt Date: 20100628
  Transmission Date: 20110831
  Serious: Yes (Other)
  Sender: FDA-Public Use
  Company Number: US-JNJFOC-20100504082

PATIENT
  Age: 24 Month
  Sex: Male
  Weight: 13.1543 kg

DRUGS (2)
  1. CHILDREN'S MOTRIN [Suspect]
     Indication: NASOPHARYNGITIS
     Dosage: 300 MG, 3 IN 1 DAY, ORAL
     Route: 048
     Dates: start: 20100501, end: 20100503
  2. CHILDREN'S MOTRIN [Suspect]
     Indication: PYREXIA
     Dosage: 300 MG, 3 IN 1 DAY, ORAL
     Route: 048
     Dates: start: 20100501, end: 20100503

REACTIONS (2)
  - HYPERSENSITIVITY [None]
  - PRODUCT QUALITY ISSUE [None]
